FAERS Safety Report 5885521-7 (Version None)
Quarter: 2008Q3

REPORT INFORMATION
  Report Type: 
  Country: None (occurrence: None)
  Receive Date: 20080916
  Receipt Date: 20080909
  Transmission Date: 20090109
  Serious: Yes (Other)
  Sender: FDA-Public Use
  Company Number: JP-BRISTOL-MYERS SQUIBB COMPANY-14336374

PATIENT
  Age: 44 Year
  Sex: Female
  Weight: 64 kg

DRUGS (7)
  1. ABILIFY [Suspect]
     Indication: SCHIZOPHRENIA
     Dosage: 18MG;29APR-11MAY(13DYS), 24MG;12MAY-26JUL(76DYS), 30MG;27JUL-04AUG(9DYS) 18MG;5AUG-11AUG(9DYS).
     Route: 048
     Dates: start: 20080429, end: 20080811
  2. RISPERDAL [Concomitant]
  3. AKINETON [Concomitant]
     Dates: end: 20080630
  4. HIRNAMIN [Concomitant]
  5. PROMETHAZINE HCL [Concomitant]
  6. UBRETID [Concomitant]
     Dosage: TABLET
     Dates: end: 20080526
  7. YODEL-S [Concomitant]

REACTIONS (3)
  - ABNORMAL BEHAVIOUR [None]
  - DELUSION [None]
  - HALLUCINATION [None]
